FAERS Safety Report 7562095-6 (Version None)
Quarter: 2011Q2

REPORT INFORMATION
  Report Type: 
  Country: None (occurrence: None)
  Receive Date: 20110622
  Receipt Date: 20110612
  Transmission Date: 20111010
  Serious: Yes (Hospitalization)
  Sender: FDA-Public Use
  Company Number: IL-BIOGENIDEC-2011BI021766

PATIENT
  Age: 27 Year
  Sex: Male

DRUGS (1)
  1. TYSABRI [Suspect]
     Indication: PRODUCT USED FOR UNKNOWN INDICATION
     Dates: start: 20110329, end: 20110511

REACTIONS (4)
  - DIARRHOEA [None]
  - PYREXIA [None]
  - INCONTINENCE [None]
  - HYPOAESTHESIA [None]
